FAERS Safety Report 14174300 (Version 17)
Quarter: 2023Q1

REPORT INFORMATION
  Report Type: Spontaneous
  Country: GB (occurrence: GB)
  Receive Date: 20171109
  Receipt Date: 20230217
  Transmission Date: 20230417
  Serious: Yes (Other)
  Sender: FDA-Public Use
  Company Number: GB-NOVPHSZ-PHHY2017GB160255

PATIENT
  Age: 17 Year
  Sex: Female

DRUGS (28)
  1. DOCETAXEL [Suspect]
     Active Substance: DOCETAXEL
     Indication: Desmoplastic small round cell tumour
     Dosage: 3 LINES OF CHEMOTHERAPY
  2. DOCETAXEL [Suspect]
     Active Substance: DOCETAXEL
     Dosage: UNK
  3. GEMCITABINE HYDROCHLORIDE [Suspect]
     Active Substance: GEMCITABINE HYDROCHLORIDE
     Indication: Desmoplastic small round cell tumour
     Dosage: 3 LINES OF CHEMOTHERAPY
     Route: 065
  4. VINCRISTINE SULFATE [Suspect]
     Active Substance: VINCRISTINE SULFATE
     Indication: Desmoplastic small round cell tumour
     Dosage: 4 CYCLES, 1 UNIT,  IVA 5 CYCLES
     Route: 042
  5. VINCRISTINE SULFATE [Suspect]
     Active Substance: VINCRISTINE SULFATE
     Dosage: 3 LINES OF CHEMOTHERAPY
     Route: 042
  6. VINCRISTINE SULFATE [Suspect]
     Active Substance: VINCRISTINE SULFATE
     Dosage: UNK, CYCLIC (1 UNIT, 4 CYCLES; CYCLICAL)
     Route: 042
  7. DOXORUBICIN [Suspect]
     Active Substance: DOXORUBICIN
     Indication: Desmoplastic small round cell tumour
     Dosage: UNK (1 UNIT, 4 CYCLES; CYCLICAL)
     Route: 065
  8. TOPOTECAN HYDROCHLORIDE [Suspect]
     Active Substance: TOPOTECAN HYDROCHLORIDE
     Indication: Desmoplastic small round cell tumour
     Dosage: 3 LINES OF CHEMOTHERAPY
     Route: 065
  9. IRINOTECAN HYDROCHLORIDE [Suspect]
     Active Substance: IRINOTECAN HYDROCHLORIDE
     Indication: Desmoplastic small round cell tumour
     Dosage: UNK
     Route: 065
  10. IRINOTECAN HYDROCHLORIDE [Suspect]
     Active Substance: IRINOTECAN HYDROCHLORIDE
     Dosage: 3 LINES OF CHEMOTHERAPY
     Route: 065
  11. ONDANSETRON [Suspect]
     Active Substance: ONDANSETRON
     Dosage: UNK
  12. CYCLOPHOSPHAMIDE [Suspect]
     Active Substance: CYCLOPHOSPHAMIDE
     Indication: Desmoplastic small round cell tumour
     Dosage: 3 LINES OF CHEMOTHERAPY
     Route: 065
  13. CYCLOPHOSPHAMIDE [Suspect]
     Active Substance: CYCLOPHOSPHAMIDE
     Dosage: INJECTION 1 G, 4 CYCLES, MAINTENANCE THERAPY
  14. VINORELBINE TARTRATE [Suspect]
     Active Substance: VINORELBINE TARTRATE
     Indication: Desmoplastic small round cell tumour
     Dosage: UNK, CYCLIC (1 UNIT,4 CYCLES, MAINTENANCE THERAPY ; CYCLICAL)
     Route: 065
  15. TEMOZOLOMIDE [Suspect]
     Active Substance: TEMOZOLOMIDE
     Indication: Desmoplastic small round cell tumour
     Dosage: 3 LINES OF CHEMOTHERAPY
     Route: 065
  16. IRINOTECAN [Suspect]
     Active Substance: IRINOTECAN
     Indication: Desmoplastic small round cell tumour
     Dosage: 3 LINES OF CHEMOTHERAPY
  17. IRINOTECAN [Suspect]
     Active Substance: IRINOTECAN
     Dosage: UNK
  18. IFOSFAMIDE [Suspect]
     Active Substance: IFOSFAMIDE
     Indication: Desmoplastic small round cell tumour
     Dosage: UNK UNK, CYCLIC (1 UNIT,IVA 5 CYCLES ; CYCLICAL   )
     Route: 065
  19. IFOSFAMIDE [Suspect]
     Active Substance: IFOSFAMIDE
     Dosage: UNK 4 CYCLES ; CYCLICAL
  20. ACTINOMYCIN D [Suspect]
     Active Substance: DACTINOMYCIN
     Indication: Desmoplastic small round cell tumour
     Dosage: IVA 5 CYCLES; CYCLICAL
     Route: 042
  21. ACTINOMYCIN D [Suspect]
     Active Substance: DACTINOMYCIN
     Dosage: UNK 4 CYCLES ; CYCLICAL
  22. ONDANSETRON [Concomitant]
     Active Substance: ONDANSETRON
     Dosage: 8 MG, AS NEEDED (PRN)
     Route: 065
  23. CYCLIZINE [Concomitant]
     Active Substance: CYCLIZINE
     Dosage: 50 MG, AS NEEDED (PRN)
     Route: 065
  24. MELATONIN [Concomitant]
     Active Substance: MELATONIN
     Dosage: 6 MG, ONCE DAILY (QD)
     Route: 065
  25. SULFAMETHOXAZOLE\TRIMETHOPRIM [Concomitant]
     Active Substance: SULFAMETHOXAZOLE\TRIMETHOPRIM
     Dosage: 960 MG, UNK (480 MG, BID, SATURDAY AND SUNDAY)
     Route: 065
  26. SULFAMETHOXAZOLE\TRIMETHOPRIM [Concomitant]
     Active Substance: SULFAMETHOXAZOLE\TRIMETHOPRIM
     Dosage: 480 MG, 1X/DAY
  27. SULFAMETHOXAZOLE\TRIMETHOPRIM [Concomitant]
     Active Substance: SULFAMETHOXAZOLE\TRIMETHOPRIM
     Dosage: 480 UNK, (BID, SATURDAY AND SUNDAY)
  28. PAZOPANIB [PAZOPANIB HYDROCHLORIDE] [Concomitant]
     Dosage: UNK
     Route: 048

REACTIONS (2)
  - Ascites [Recovering/Resolving]
  - Neoplasm progression [Unknown]

NARRATIVE: CASE EVENT DATE: 20170801
